FAERS Safety Report 5119957-9 (Version None)
Quarter: 2006Q3

REPORT INFORMATION
  Report Type: 
  Country: None (occurrence: None)
  Receive Date: 20060929
  Receipt Date: 20060916
  Transmission Date: 20061208
  Serious: Yes (Other)
  Sender: FDA-Public Use
  Company Number: 2006113243

PATIENT

DRUGS (1)
  1. AROMASIN [Suspect]

REACTIONS (1)
  - COLITIS ULCERATIVE [None]
